FAERS Safety Report 15984355 (Version 2)
Quarter: 2019Q1

REPORT INFORMATION
  Report Type: Report from Study
  Country: DE (occurrence: DE)
  Receive Date: 20190220
  Receipt Date: 20190302
  Transmission Date: 20190418
  Serious: Yes (Hospitalization, Congenital Anomaly, Other)
  Sender: FDA-Public Use
  Company Number: DE-ACCORD-107175

PATIENT
  Sex: Female
  Weight: 3.32 kg

DRUGS (10)
  1. HYDROCHLOROTHIAZIDE. [Suspect]
     Active Substance: HYDROCHLOROTHIAZIDE
     Indication: PRODUCT USED FOR UNKNOWN INDICATION
     Dosage: UNK (PREGNANCY WEEK 0 TO 7 (+2))
     Route: 064
  2. METHYLDOPA. [Suspect]
     Active Substance: METHYLDOPA
     Indication: PRODUCT USED FOR UNKNOWN INDICATION
     Dosage: UNK (PREGNANCY WEEK 7(+3) TO 10)
     Route: 064
  3. METOPROLOL. [Suspect]
     Active Substance: METOPROLOL
     Indication: PRODUCT USED FOR UNKNOWN INDICATION
     Dosage: UNK (PREGNANCY WEEK 7 (+3) TO 38)
     Route: 064
  4. ALISKIREN [Suspect]
     Active Substance: ALISKIREN
     Indication: PRODUCT USED FOR UNKNOWN INDICATION
     Dosage: UNK (PREGNANCY WEEK 0 TO 7 (+2))
     Route: 064
  5. AMLODIPINE [Suspect]
     Active Substance: AMLODIPINE BESYLATE
     Indication: PRODUCT USED FOR UNKNOWN INDICATION
     Dosage: UNK (PREGNANCY WEEK 0 TO 7 (+2))
     Route: 064
  6. PERINDOPRIL/PERINDOPRIL ERBUMINE [Suspect]
     Active Substance: PERINDOPRIL ERBUMINE
     Indication: PRODUCT USED FOR UNKNOWN INDICATION
     Dosage: UNK (PREGNANCY WEEK 0 TO 7 (+2))
     Route: 064
  7. INDAPAMIDE. [Suspect]
     Active Substance: INDAPAMIDE
     Indication: PRODUCT USED FOR UNKNOWN INDICATION
     Dosage: UNK (PREGNANCY WEEK 0 TO 7 (+2))
     Route: 064
  8. METFORMIN [Suspect]
     Active Substance: METFORMIN HYDROCHLORIDE
     Indication: PRODUCT USED FOR UNKNOWN INDICATION
     Dosage: UNK (PREGNANCY WEEK 0 TO 7 (+2))
     Route: 064
  9. INSULIN [Concomitant]
     Active Substance: INSULIN NOS
     Dosage: UNK
     Route: 064
  10. BISOPROLOL [Suspect]
     Active Substance: BISOPROLOL
     Indication: PRODUCT USED FOR UNKNOWN INDICATION
     Dosage: UNK (PREGNANCY WEEK 0 TO 7 (+2))
     Route: 064

REACTIONS (6)
  - Foetal exposure during pregnancy [Unknown]
  - Intestinal malrotation [Unknown]
  - Persistent cloaca [Unknown]
  - Conjoined twins [Unknown]
  - Urachal abnormality [Unknown]
  - Congenital bladder anomaly [Unknown]

NARRATIVE: CASE EVENT DATE: 2018
